FAERS Safety Report 7729690-2 (Version None)
Quarter: 2011Q3

REPORT INFORMATION
  Report Type: 
  Country: None (occurrence: None)
  Receive Date: 20110906
  Receipt Date: 20110829
  Transmission Date: 20111222
  Serious: Yes (Other)
  Sender: FDA-Public Use
  Company Number: US-BAYER-2011-080600

PATIENT
  Age: 27 Year
  Sex: Female

DRUGS (1)
  1. YASMIN [Suspect]
     Dosage: UNK
     Dates: start: 20020701, end: 20061101

REACTIONS (8)
  - PSYCHIATRIC SYMPTOM [None]
  - PAIN [None]
  - INJURY [None]
  - FEAR [None]
  - CEREBRAL THROMBOSIS [None]
  - AMNESIA [None]
  - ANXIETY [None]
  - ANHEDONIA [None]
